FAERS Safety Report 22810977 (Version 2)
Quarter: 2024Q1

REPORT INFORMATION
  Report Type: Spontaneous
  Country: JP (occurrence: None)
  Receive Date: 20230810
  Receipt Date: 20240129
  Transmission Date: 20240410
  Serious: Yes (Hospitalization)
  Sender: FDA-Public Use
  Company Number: 2023A178389

PATIENT
  Age: 73 Year

DRUGS (3)
  1. IMFINZI [Suspect]
     Active Substance: DURVALUMAB
     Indication: Bile duct cancer
     Dosage: DOSE UNKNOWN
     Route: 041
     Dates: start: 20230208
  2. GEMCITABINE HYDROCHLORIDE [Concomitant]
     Active Substance: GEMCITABINE HYDROCHLORIDE
     Indication: Bile duct cancer
     Dosage: DOSE UNKNOWN
     Dates: start: 20230208
  3. CISPLATIN [Concomitant]
     Active Substance: CISPLATIN
     Indication: Bile duct cancer
     Dosage: DOSE UNKNOWN
     Dates: start: 20230208

REACTIONS (7)
  - Seizure [Recovering/Resolving]
  - Cholangitis [Recovering/Resolving]
  - Arthralgia [Recovering/Resolving]
  - Adrenal insufficiency [Recovering/Resolving]
  - Eczema [Recovering/Resolving]
  - Hyponatraemia [Unknown]
  - Hypothalamo-pituitary disorder [Unknown]

NARRATIVE: CASE EVENT DATE: 20230101
